FAERS Safety Report 10535380 (Version 2)
Quarter: 2014Q4

REPORT INFORMATION
  Report Type: Spontaneous
  Country: DE (occurrence: DE)
  Receive Date: 20141022
  Receipt Date: 20141111
  Transmission Date: 20150529
  Serious: Yes (Hospitalization, Other)
  Sender: FDA-Public Use
  Company Number: DE-GLAXOSMITHKLINE-DE2014GSK006496

PATIENT
  Age: 51 Year
  Sex: Female
  Weight: 70 kg

DRUGS (2)
  1. LORAZEPAM. [Suspect]
     Active Substance: LORAZEPAM
     Indication: PRODUCT USED FOR UNKNOWN INDICATION
     Dosage: 20 MG, SINGLE
  2. ELONTRIL [Suspect]
     Active Substance: BUPROPION HYDROCHLORIDE
     Indication: PRODUCT USED FOR UNKNOWN INDICATION
     Dosage: 27000 MG, SINGLE
     Route: 048

REACTIONS (16)
  - Lactic acidosis [Unknown]
  - Electroencephalogram abnormal [Unknown]
  - Mydriasis [Unknown]
  - Seizure [Unknown]
  - Acidosis [Unknown]
  - Hyporeflexia [Unknown]
  - Confusional state [Unknown]
  - Intentional overdose [Unknown]
  - Somnolence [Unknown]
  - Brain oedema [Unknown]
  - Ileus paralytic [Unknown]
  - Diastolic hypertension [Unknown]
  - Myoclonus [Unknown]
  - Suicide attempt [Unknown]
  - Agitation [Unknown]
  - Pyrexia [Unknown]

NARRATIVE: CASE EVENT DATE: 201410
